FAERS Safety Report 8262295 (Version 3)
Quarter: 2012Q4

REPORT INFORMATION
  Report Type: 
  Country: US (occurrence: US)
  Receive Date: 20111123
  Receipt Date: 20121220
  Transmission Date: 20130627
  Serious: No
  Sender: FDA-Public Use
  Company Number: US-PFIZER INC-2011282080

PATIENT
  Age: 58 Year
  Sex: Female
  Weight: 49.89 kg

DRUGS (2)
  1. FLAGYL [Suspect]
     Indication: CLOSTRIDIUM DIFFICILE INFECTION
     Dosage: UNK
     Dates: start: 2011
  2. WELLBUTRIN [Concomitant]
     Dosage: UNK

REACTIONS (3)
  - Abdominal discomfort [Unknown]
  - Eating disorder [Unknown]
  - Drug ineffective [Unknown]
